FAERS Safety Report 6358617-3 (Version None)
Quarter: 2009Q3

REPORT INFORMATION
  Report Type: 
  Country: None (occurrence: None)
  Receive Date: 20090914
  Receipt Date: 20090831
  Transmission Date: 20100115
  Serious: Yes (Death)
  Sender: FDA-Public Use
  Company Number: 2009AL005671

PATIENT
  Sex: Female

DRUGS (1)
  1. DIGOXIN [Suspect]
     Dosage: PO
     Route: 048

REACTIONS (5)
  - ECONOMIC PROBLEM [None]
  - MALAISE [None]
  - MULTIPLE INJURIES [None]
  - SOCIAL AVOIDANT BEHAVIOUR [None]
  - SURGERY [None]
